FAERS Safety Report 8181513-6 (Version None)
Quarter: 2012Q1

REPORT INFORMATION
  Report Type: 
  Country: None (occurrence: None)
  Receive Date: 20120301
  Receipt Date: 20120301
  Transmission Date: 20120608
  Serious: Yes (Life-Threatening)
  Sender: FDA-Public Use
  Company Number: None

PATIENT
  Age: 52 Year
  Sex: Male
  Weight: 95 kg

DRUGS (1)
  1. LISINOPRIL [Suspect]
     Indication: HYPERTENSION
     Dosage: 20 MG EVERY DAY PO
     Route: 048
     Dates: start: 20100709, end: 20120201

REACTIONS (5)
  - DYSPHAGIA [None]
  - LIP SWELLING [None]
  - SWOLLEN TONGUE [None]
  - ANGIOEDEMA [None]
  - DYSPNOEA [None]
